FAERS Safety Report 22272971 (Version 3)
Quarter: 2023Q2

REPORT INFORMATION
  Report Type: Spontaneous
  Country: NL (occurrence: NL)
  Receive Date: 20230502
  Receipt Date: 20230605
  Transmission Date: 20230722
  Serious: Yes (Other)
  Sender: FDA-Public Use
  Company Number: None

PATIENT
  Sex: Female
  Weight: 80 kg

DRUGS (2)
  1. CYCLOSPORINE [Interacting]
     Active Substance: CYCLOSPORINE
     Indication: Renal transplant
     Dosage: 100 MG
     Route: 065
     Dates: start: 20180915
  2. ACYCLOVIR [Interacting]
     Active Substance: ACYCLOVIR
     Indication: Varicella zoster virus infection
     Dosage: 10 MG/KG, Q8H
     Route: 065
     Dates: start: 20210915, end: 20210919

REACTIONS (6)
  - Acute kidney injury [Recovered/Resolved]
  - Neurotoxicity [Recovered/Resolved]
  - Hallucination [Recovered/Resolved]
  - Speech disorder [Recovered/Resolved]
  - Balance disorder [Recovered/Resolved]
  - Drug interaction [Unknown]
